FAERS Safety Report 25145032 (Version 1)
Quarter: 2025Q2

REPORT INFORMATION
  Report Type: Spontaneous
  Country: CA (occurrence: None)
  Receive Date: 20250401
  Receipt Date: 20250401
  Transmission Date: 20250716
  Serious: Yes (Other)
  Sender: FDA-CTU
  Company Number: None

PATIENT
  Age: 54 Year
  Sex: Female
  Weight: 52.65 kg

DRUGS (1)
  1. ENOXAPARIN [Suspect]
     Active Substance: ENOXAPARIN
     Indication: Anticoagulant therapy
     Dosage: FREQUENCY : EVERY 12 HOURS;?
     Route: 030

REACTIONS (10)
  - Rectal haemorrhage [None]
  - Nausea [None]
  - Vomiting [None]
  - Renal pain [None]
  - Peripheral swelling [None]
  - Peripheral swelling [None]
  - Contusion [None]
  - Eye swelling [None]
  - Chest discomfort [None]
  - Anal incontinence [None]

NARRATIVE: CASE EVENT DATE: 20250331
